FAERS Safety Report 10660397 (Version 2)
Quarter: 2014Q4

REPORT INFORMATION
  Report Type: Spontaneous
  Country: US (occurrence: US)
  Receive Date: 20141217
  Receipt Date: 20141217
  Transmission Date: 20150529
  Serious: No
  Sender: FDA-Public Use
  Company Number: US-GLAXOSMITHKLINE-A1087609A

PATIENT

DRUGS (11)
  1. CALCIUM ACETATE. [Concomitant]
     Active Substance: CALCIUM ACETATE
  2. NIFEDIPINE. [Concomitant]
     Active Substance: NIFEDIPINE
  3. LISINOPRIL. [Concomitant]
     Active Substance: LISINOPRIL
  4. ATENOLOL. [Concomitant]
     Active Substance: ATENOLOL
  5. VOTRIENT [Suspect]
     Active Substance: PAZOPANIB HYDROCHLORIDE
     Indication: RENAL CELL CARCINOMA
     Dosage: 800 MG DAILY
     Route: 048
     Dates: start: 20140803
  6. SERTRALINE [Concomitant]
     Active Substance: SERTRALINE HYDROCHLORIDE
  7. VITAMINS [Concomitant]
     Active Substance: VITAMINS
  8. SUCRALFATE. [Concomitant]
     Active Substance: SUCRALFATE
  9. ATENOLOL. [Concomitant]
     Active Substance: ATENOLOL
  10. SENSIPAR [Concomitant]
     Active Substance: CINACALCET HYDROCHLORIDE
  11. ALLOPURINOL. [Concomitant]
     Active Substance: ALLOPURINOL

REACTIONS (3)
  - Dysgeusia [Not Recovered/Not Resolved]
  - Muscle spasms [Unknown]
  - Diarrhoea [Not Recovered/Not Resolved]

NARRATIVE: CASE EVENT DATE: 20140803
